FAERS Safety Report 20961295 (Version 1)
Quarter: 2022Q2

REPORT INFORMATION
  Report Type: Report from Study
  Country: CA (occurrence: CA)
  Receive Date: 20220615
  Receipt Date: 20220615
  Transmission Date: 20220721
  Serious: Yes (Other)
  Sender: FDA-Public Use
  Company Number: CA-JNJFOC-20220225241

PATIENT
  Age: 28 Year
  Sex: Female

DRUGS (1)
  1. REMICADE [Suspect]
     Active Substance: INFLIXIMAB
     Indication: Crohn^s disease
     Dosage: APPOINTMENT SCHEDULE ON 17-JUN-2022 WAS REBOOKED TO 13-JUN-2022
     Route: 042
     Dates: start: 20080407

REACTIONS (7)
  - Haematochezia [Unknown]
  - Fatigue [Unknown]
  - Pyrexia [Unknown]
  - COVID-19 [Recovering/Resolving]
  - Oropharyngeal pain [Unknown]
  - Diarrhoea [Unknown]
  - Off label use [Unknown]

NARRATIVE: CASE EVENT DATE: 20080407
